FAERS Safety Report 5352197-7 (Version None)
Quarter: 2007Q2

REPORT INFORMATION
  Report Type: 
  Country: None (occurrence: None)
  Receive Date: 20070521
  Receipt Date: 20070221
  Transmission Date: 20071010
  Serious: No
  Sender: FDA-Public Use
  Company Number: WAES 0702USA03851

PATIENT
  Age: 69 Year
  Sex: Male
  Weight: 83.9154 kg

DRUGS (4)
  1. JANUVIA [Suspect]
     Indication: DIABETES MELLITUS NON-INSULIN-DEPENDENT
     Dosage: 50 MG/DAILY/PO
     Route: 048
     Dates: start: 20061120, end: 20061130
  2. ALDACTONE [Concomitant]
  3. LASIX [Concomitant]
  4. MICARDIS HCT [Concomitant]

REACTIONS (1)
  - RASH MACULO-PAPULAR [None]
